FAERS Safety Report 16514076 (Version 1)
Quarter: 2019Q3

REPORT INFORMATION
  Report Type: Report from Study
  Country: None (occurrence: BR)
  Receive Date: 20190702
  Receipt Date: 20190702
  Transmission Date: 20191004
  Serious: Yes (Hospitalization, Other)
  Sender: FDA-Public Use
  Company Number: BR-ABBVIE-18K-020-2449634-00

PATIENT
  Age: 21 Year
  Sex: Female
  Weight: 69 kg

DRUGS (5)
  1. HUMIRA [Suspect]
     Active Substance: ADALIMUMAB
     Indication: CROHN^S DISEASE
     Route: 058
     Dates: start: 20160902
  2. AZATHIOPRINE. [Concomitant]
     Active Substance: AZATHIOPRINE
     Indication: CROHN^S DISEASE
  3. HUMIRA [Suspect]
     Active Substance: ADALIMUMAB
     Route: 058
     Dates: start: 2019
  4. FOLIC ACID. [Concomitant]
     Active Substance: FOLIC ACID
     Indication: PRODUCT USED FOR UNKNOWN INDICATION
  5. MESALAZINE [Concomitant]
     Active Substance: MESALAMINE
     Indication: CROHN^S DISEASE
     Dosage: FORM OF ADMINISTRATION SUPPOSITORY

REACTIONS (12)
  - Suppressed lactation [Recovered/Resolved]
  - Haemorrhage in pregnancy [Recovering/Resolving]
  - Exposure during pregnancy [Unknown]
  - Crohn^s disease [Recovering/Resolving]
  - Diarrhoea haemorrhagic [Recovered/Resolved]
  - Frequent bowel movements [Recovering/Resolving]
  - Crying [Recovered/Resolved]
  - Gastrointestinal infection [Recovered/Resolved]
  - Live birth [Unknown]
  - Urinary tract infection [Recovered/Resolved]
  - Depression [Recovered/Resolved]
  - Vomiting [Recovered/Resolved]

NARRATIVE: CASE EVENT DATE: 20180321
